FAERS Safety Report 5577969-5 (Version None)
Quarter: 2007Q4

REPORT INFORMATION
  Report Type: 
  Country: None (occurrence: None)
  Receive Date: 20071231
  Receipt Date: 20071219
  Transmission Date: 20080405
  Serious: Yes (Other)
  Sender: FDA-Public Use
  Company Number: JP-ROCHE-538177

PATIENT
  Age: 66 Year
  Sex: Female

DRUGS (5)
  1. CELLCEPT [Suspect]
     Route: 065
  2. PREDNISOLONE [Concomitant]
  3. PROGRAF [Concomitant]
  4. PEG-INTRON [Concomitant]
  5. REBETOL [Concomitant]

REACTIONS (3)
  - BREAST CANCER [None]
  - HEPATITIS C [None]
  - LUNG NEOPLASM MALIGNANT [None]
